FAERS Safety Report 4714589-6 (Version None)
Quarter: 2005Q3

REPORT INFORMATION
  Report Type: 
  Country: None (occurrence: None)
  Receive Date: 20050713
  Receipt Date: 20050713
  Transmission Date: 20060218
  Serious: Yes (Hospitalization)
  Sender: FDA-Public Use
  Company Number: None

PATIENT
  Age: 76 Year
  Sex: Female

DRUGS (2)
  1. ASPIRIN [Suspect]
     Dosage: ORAL; 325.0 MILLIGRAM
     Route: 048
     Dates: start: 20050606, end: 20050609
  2. HEPARIN [Suspect]
     Indication: ANTICOAGULANT THERAPY
     Dosage: SUBCUTANEOUS; 5000.0
     Route: 058
     Dates: start: 20050606, end: 20050610

REACTIONS (4)
  - ACTIVATED PARTIAL THROMBOPLASTIN TIME PROLONGED [None]
  - ANAEMIA [None]
  - COAGULOPATHY [None]
  - LOWER GASTROINTESTINAL HAEMORRHAGE [None]
